FAERS Safety Report 12639043 (Version 1)
Quarter: 2016Q3

REPORT INFORMATION
  Report Type: Spontaneous
  Country: US (occurrence: US)
  Receive Date: 20160809
  Receipt Date: 20160809
  Transmission Date: 20161109
  Serious: Yes (Other)
  Sender: FDA-Public Use
  Company Number: US-BEH-2016061130

PATIENT
  Age: 11 Year
  Sex: Male

DRUGS (1)
  1. STIMATE [Suspect]
     Active Substance: DESMOPRESSIN ACETATE
     Indication: VON WILLEBRAND^S DISEASE
     Dosage: STRENGTH 1.5 MG , 1 SPRAY ONE NOSTRIL DAILY AS NEEDED
     Route: 045

REACTIONS (1)
  - Drug ineffective [Recovering/Resolving]
